FAERS Safety Report 9519702 (Version 1)
Quarter: 2013Q1

REPORT INFORMATION
  Report Type: Spontaneous
  Country: US (occurrence: None)
  Receive Date: 20130305
  Receipt Date: 20130305
  Transmission Date: 20140127
  Serious: Yes (Hospitalization)
  Sender: FDA-Public Use
  Company Number: 163-21880-12080706

PATIENT
  Age: 59 Year
  Sex: Female
  Weight: 58.51 kg

DRUGS (2)
  1. REVLIMID [Suspect]
     Indication: PLASMA CELL MYELOMA
     Route: 048
     Dates: start: 20120801
  2. CHEMO INJECTION (CHEMOTHERAPEUTICS) [Concomitant]

REACTIONS (5)
  - Asthenia [None]
  - Platelet count decreased [None]
  - Diarrhoea [None]
  - Decreased appetite [None]
  - Insomnia [None]
